FAERS Safety Report 9605188 (Version 1)
Quarter: 2013Q4

REPORT INFORMATION
  Report Type: Spontaneous
  Country: US (occurrence: US)
  Receive Date: 20131008
  Receipt Date: 20131008
  Transmission Date: 20140711
  Serious: No
  Sender: FDA-Public Use
  Company Number: US-009507513-1309USA003992

PATIENT
  Sex: Female

DRUGS (1)
  1. NEXPLANON [Suspect]
     Indication: CONTRACEPTION
     Dosage: 68 MG, ONE ROD EVERY THREE YEARS
     Route: 059
     Dates: start: 20120813, end: 20130910

REACTIONS (4)
  - Pain in extremity [Unknown]
  - Abdominal discomfort [Unknown]
  - Hypoaesthesia [Recovered/Resolved]
  - Device breakage [Unknown]
